FAERS Safety Report 7369631-3 (Version None)
Quarter: 2011Q1

REPORT INFORMATION
  Report Type: 
  Country: None (occurrence: None)
  Receive Date: 20110323
  Receipt Date: 20110314
  Transmission Date: 20110831
  Serious: Yes (Other)
  Sender: FDA-Public Use
  Company Number: US-AMGEN-USASP2011014117

PATIENT
  Sex: Female

DRUGS (2)
  1. PROLIA [Suspect]
     Dates: start: 20110301
  2. PROLIA [Suspect]
     Indication: OSTEOPOROSIS POSTMENOPAUSAL
     Dates: start: 20110301

REACTIONS (2)
  - SKIN BURNING SENSATION [None]
  - LIVER TRANSPLANT [None]
